FAERS Safety Report 6102725-9 (Version None)
Quarter: 2009Q1

REPORT INFORMATION
  Report Type: 
  Country: None (occurrence: None)
  Receive Date: 20090227
  Receipt Date: 20090224
  Transmission Date: 20090719
  Serious: Yes (Other)
  Sender: FDA-Public Use
  Company Number: 100#03#2009-00746

PATIENT
  Age: 49 Year
  Sex: Female

DRUGS (4)
  1. TRAMADOL HCL [Suspect]
     Indication: BACK PAIN
     Dosage: FOUR TIMES DAILY ORAL
     Route: 048
     Dates: start: 20081227, end: 20081201
  2. QVAR 40 [Concomitant]
  3. SALBUTAMOL (SALBUTAMOL) [Concomitant]
  4. TRIMETHOPRIM [Concomitant]

REACTIONS (3)
  - COUGH [None]
  - DRUG WITHDRAWAL SYNDROME [None]
  - WHEEZING [None]
